FAERS Safety Report 4427871-7 (Version None)
Quarter: 2004Q3

REPORT INFORMATION
  Report Type: 
  Country: None (occurrence: None)
  Receive Date: 20040813
  Receipt Date: 20040726
  Transmission Date: 20050211
  Serious: Yes (Death, Congenital Anomaly)
  Sender: FDA-Public Use
  Company Number: WAES 0407USA02487

PATIENT
  Sex: Female

DRUGS (3)
  1. PEPCID [Suspect]
  2. ACETAMINOPHEN [Concomitant]
  3. METOCLOPRAMIDE [Concomitant]

REACTIONS (4)
  - CONGENITAL ANOMALY [None]
  - DEATH NEONATAL [None]
  - DRUG EXPOSURE DURING PREGNANCY [None]
  - TRANSPOSITION OF THE GREAT VESSELS [None]
